FAERS Safety Report 8540420-7 (Version None)
Quarter: 2012Q3

REPORT INFORMATION
  Report Type: 
  Country: None (occurrence: None)
  Receive Date: 20120726
  Receipt Date: 20110927
  Transmission Date: 20120928
  Serious: No
  Sender: FDA-Public Use
  Company Number: US-ASTRAZENECA-2011SE34610

PATIENT
  Age: 52 Year
  Sex: Male

DRUGS (5)
  1. CELEXA [Concomitant]
  2. LOPRESSOR [Concomitant]
  3. MICARDIS [Concomitant]
  4. SEROQUEL [Suspect]
     Indication: DEPRESSION
     Route: 048
     Dates: start: 20110201, end: 20110501
  5. SEROQUEL [Suspect]
     Route: 048
     Dates: start: 20110512

REACTIONS (7)
  - DRUG DOSE OMISSION [None]
  - GYNAECOMASTIA [None]
  - THERAPEUTIC RESPONSE UNEXPECTED [None]
  - DRUG INEFFECTIVE [None]
  - FATIGUE [None]
  - INCREASED APPETITE [None]
  - DRUG EFFECT DELAYED [None]
